FAERS Safety Report 17755577 (Version 1)
Quarter: 2020Q2

REPORT INFORMATION
  Report Type: Spontaneous
  Country: US (occurrence: US)
  Receive Date: 20200507
  Receipt Date: 20200507
  Transmission Date: 20200714
  Serious: No
  Sender: FDA-Public Use
  Company Number: US-PFIZER INC-2020180809

PATIENT
  Sex: Female

DRUGS (1)
  1. PREGABALIN. [Suspect]
     Active Substance: PREGABALIN
     Dosage: UNK

REACTIONS (6)
  - Contusion [Unknown]
  - Pruritus [Unknown]
  - Fibromyalgia [Unknown]
  - Nervous system disorder [Unknown]
  - Skin lesion [Unknown]
  - Memory impairment [Unknown]
